FAERS Safety Report 22183373 (Version 2)
Quarter: 2023Q2

REPORT INFORMATION
  Report Type: Spontaneous
  Country: US (occurrence: US)
  Receive Date: 20230406
  Receipt Date: 20230425
  Transmission Date: 20230721
  Serious: No
  Sender: FDA-Public Use
  Company Number: US-ALLERGAN-2303606US

PATIENT
  Age: 55 Year
  Sex: Female
  Weight: 77.11 kg

DRUGS (10)
  1. QULIPTA [Suspect]
     Active Substance: ATOGEPANT
     Indication: Migraine
     Dosage: 60 MG, QD
     Route: 048
     Dates: start: 20221222
  2. PROBIOTICS NOS [Concomitant]
     Active Substance: PROBIOTICS NOS
  3. BUPROPION [Concomitant]
     Active Substance: BUPROPION
  4. GABAPENTIN [Concomitant]
     Active Substance: GABAPENTIN
  5. KETOROLAC [Concomitant]
     Active Substance: KETOROLAC TROMETHAMINE
  6. OMEPRAZOLE [Concomitant]
     Active Substance: OMEPRAZOLE
  7. TIZANIDINE [Concomitant]
     Active Substance: TIZANIDINE
  8. TOPIRAMATE [Concomitant]
     Active Substance: TOPIRAMATE
  9. TRAMADOL [Concomitant]
     Active Substance: TRAMADOL
  10. ZOLPIDEM [Concomitant]
     Active Substance: ZOLPIDEM TARTRATE

REACTIONS (3)
  - Dizziness [Recovering/Resolving]
  - Migraine [Unknown]
  - Drug ineffective [Unknown]

NARRATIVE: CASE EVENT DATE: 20220118
